FAERS Safety Report 8037101-5 (Version None)
Quarter: 2012Q1

REPORT INFORMATION
  Report Type: 
  Country: None (occurrence: None)
  Receive Date: 20120111
  Receipt Date: 20120104
  Transmission Date: 20120608
  Serious: Yes (Hospitalization)
  Sender: FDA-Public Use
  Company Number: IT-GLAXOSMITHKLINE-B0774390A

PATIENT
  Sex: Female

DRUGS (2)
  1. ELTROMBOPAG [Suspect]
     Indication: MYELODYSPLASTIC SYNDROME
     Dates: start: 20111006, end: 20111214
  2. EXJADE [Concomitant]
     Dosage: 1250MG TWICE PER DAY

REACTIONS (2)
  - DIARRHOEA [None]
  - DEHYDRATION [None]
